FAERS Safety Report 7253205-9 (Version None)
Quarter: 2011Q1

REPORT INFORMATION
  Report Type: 
  Country: None (occurrence: None)
  Receive Date: 20110129
  Receipt Date: 20100215
  Transmission Date: 20110831
  Serious: No
  Sender: FDA-Public Use
  Company Number: US-ABBOTT-10P-163-0626509-00

PATIENT
  Sex: Male
  Weight: 141.65 kg

DRUGS (7)
  1. CLOBETASOL [Concomitant]
     Indication: SKIN PLAQUE
  2. HUMIRA [Suspect]
     Indication: PSORIASIS
     Route: 058
     Dates: start: 20090501
  3. UNKNOWN STEROID CREAM [Concomitant]
     Indication: SKIN DISORDER
     Route: 061
  4. VICODIN [Concomitant]
     Indication: PAIN
  5. HUMIRA [Suspect]
     Indication: PSORIATIC ARTHROPATHY
  6. ROBAXIN [Concomitant]
     Indication: MUSCULOSKELETAL DISCOMFORT
  7. AMBIEN [Concomitant]
     Indication: INSOMNIA

REACTIONS (3)
  - INJECTION SITE DISCOMFORT [None]
  - WRONG TECHNIQUE IN DRUG USAGE PROCESS [None]
  - INJECTION SITE PAIN [None]
